FAERS Safety Report 7943828-3 (Version None)
Quarter: 2011Q4

REPORT INFORMATION
  Report Type: 
  Country: None (occurrence: None)
  Receive Date: 20111128
  Receipt Date: 20111116
  Transmission Date: 20120403
  Serious: Yes (Hospitalization)
  Sender: FDA-Public Use
  Company Number: AU-ROCHE-688655

PATIENT
  Sex: Male
  Weight: 62.5 kg

DRUGS (19)
  1. ACTEMRA [Suspect]
     Dosage: DOSE: 8 MG/KG
     Route: 042
  2. ACTEMRA [Suspect]
     Dosage: THE PATIENT WAS PREVIOUSLY ENROLLED IN WA18063
     Route: 042
  3. SULFASALAZINE [Concomitant]
     Dosage: FREQUENCY REPORTED AS DAILY.
     Route: 048
  4. ATACAND HCT [Concomitant]
     Dosage: FREQUENCY REPORTED AS DAILY
  5. OMEPRAZOLE [Concomitant]
  6. ACTEMRA [Suspect]
     Indication: RHEUMATOID ARTHRITIS
     Dosage: DRUG TEMPORARILY STOPPED ON 02 JULY 2008
     Route: 042
     Dates: start: 20060814, end: 20080519
  7. SULFASALAZINE [Concomitant]
     Route: 048
  8. ZOLEDRONIC ACID [Concomitant]
     Dosage: TDD REPORTED AS: 4 MGS YRLY.
  9. ACTEMRA [Suspect]
     Route: 042
  10. METHYLDOPA [Concomitant]
     Dosage: FREQUENCY REPORTED AS DAILY.
     Dates: start: 20100118, end: 20100305
  11. AMLODIPINE [Concomitant]
  12. ACTEMRA [Suspect]
     Dosage: DOSE: 8 MG/KG
     Route: 042
  13. ACTEMRA [Suspect]
     Dosage: DOSE: 8 MG/KG
     Route: 042
     Dates: start: 20100202, end: 20100407
  14. DICLOFENAC SODIUM [Concomitant]
     Route: 048
  15. DICLOFENAC SODIUM [Concomitant]
     Dosage: FREQUENCY REPORTED AS DAILY.
     Route: 048
  16. ACTEMRA [Suspect]
     Dosage: DOSE: 8 MG/KG
     Route: 042
  17. SULFASALAZINE [Concomitant]
     Dosage: FREQUENCY REPORTED AS DAILY.
     Route: 048
  18. METHYLDOPA [Concomitant]
     Dosage: FREQUENCY REPORTED AS DAILY.
     Dates: start: 20100118, end: 20100305
  19. METHYLDOPA [Concomitant]
     Dosage: FREQUENCY REPORTEDAS DAILY.

REACTIONS (2)
  - STREPTOCOCCAL INFECTION [None]
  - SINUSITIS FUNGAL [None]
